FAERS Safety Report 4270641-3 (Version None)
Quarter: 2004Q1

REPORT INFORMATION
  Report Type: 
  Country: None (occurrence: None)
  Receive Date: 20040113
  Receipt Date: 20031210
  Transmission Date: 20041129
  Serious: Yes (Hospitalization, Other)
  Sender: FDA-Public Use
  Company Number: 2002054510

PATIENT
  Age: 63 Year
  Sex: Male
  Weight: 105.6881 kg

DRUGS (55)
  1. LOPID [Suspect]
     Indication: HYPERCHOLESTEROLAEMIA
     Dosage: 1200 MG (600 MG, BID), ORAL
     Route: 048
     Dates: end: 20020101
  2. CERIVASTATIN SODIUM (CERIVASTATIN SODIUM) [Suspect]
     Indication: HYPERCHOLESTEROLAEMIA
     Dosage: 0.8 MG MG (0.4 MG, DAILY), ORAL
     Route: 048
     Dates: start: 20010315, end: 20010610
  3. ZOLOFT [Suspect]
     Indication: DEPRESSION
     Dosage: 50 MG (DAILY), ORAL
     Route: 048
     Dates: start: 20010601
  4. METOPROLOL TARTRATE [Suspect]
     Indication: ILL-DEFINED DISORDER
     Dosage: 25 MG (BID), ORAL
     Route: 048
     Dates: end: 20020306
  5. RAMIPRIL [Suspect]
     Indication: ILL-DEFINED DISORDER
     Dosage: DAILY (10 MG), ORAL
     Route: 048
     Dates: start: 20001219
  6. PIOGLITAZONE HCL [Suspect]
     Indication: ILL-DEFINED DISORDER
  7. OXYCOCET (PARACETAMOL, OXYCODONE HYDROCHLORIDE) [Concomitant]
  8. ROFECOXIB [Concomitant]
  9. FUROSEMIDE [Concomitant]
  10. WARFARIN SODIUM [Concomitant]
  11. INSULIN [Concomitant]
  12. OXYCOCET (PARACETAMOL, OXYCODONE HYDROCHLORIDE) [Concomitant]
  13. TAMSULOSIN HYDROCHLORIDE (TAMSULOSIN HYDROCHLORIDE) [Concomitant]
  14. TRAMADOL HCL [Concomitant]
  15. OTHER DIAGNOSTIC AGENTS [Concomitant]
  16. GABAPENTIN [Concomitant]
  17. CYCLOBENZAPRINE HCL [Concomitant]
  18. POTASSIUM CHLORIDE [Concomitant]
  19. ACETYLSALICYLIC ACID SRT [Concomitant]
  20. TRIAZOLAM [Concomitant]
  21. PHENAZOPYRIDINE HCL TAB [Concomitant]
  22. NITROFURANTOIN [Concomitant]
  23. ZOLPIDEM TARTRATE [Concomitant]
  24. PANTOPRAZOLE [Concomitant]
  25. CLINDAMYCIN [Concomitant]
  26. SIMVASTATIN [Concomitant]
  27. BUPROPION HYDROCHLORIDE [Concomitant]
  28. NICOTINIC ACID [Concomitant]
  29. DILTIAZEM [Concomitant]
  30. PAROXETINE HCL [Concomitant]
  31. MORPHINE SULFATE [Concomitant]
  32. CIPROFLOXACIN [Concomitant]
  33. TRIMACINOLONE [Concomitant]
  34. MACROGOL [Concomitant]
  35. CHERATUSSIN COUGH SYRUP (SODIUM CITRATE, DEXTROMETHORPHAN HYDROBROMIDE [Concomitant]
  36. CODEINE [Concomitant]
  37. AMOXICILLIN TRIHYDRATE [Concomitant]
  38. LEVOFLOXACIN [Concomitant]
  39. SEVELAMER HYDROCHLORIDE [Concomitant]
  40. ALL OTHER THERAPEUTIC PRODUCTS [Concomitant]
  41. GLUCOSAMINE [Concomitant]
  42. NICOTINIC ACID [Concomitant]
  43. GABAPENTIN [Concomitant]
  44. CAPTOPRIL [Concomitant]
  45. WARFARIN SODIUM [Concomitant]
  46. IBUPROFEN [Concomitant]
  47. ACETAMINOPHEN [Concomitant]
  48. TRAMADOL HCL [Concomitant]
  49. OXYCOCET (PARACETAMOL, OXYCODONE HYDROCHLORIDE) [Concomitant]
  50. FUROSEMIDE [Concomitant]
  51. DILTIAZEM HYDROCHLORIDE [Concomitant]
  52. POTASSIUM [Concomitant]
  53. DOCUSATE SODIUM [Concomitant]
  54. PHENAZOPYRIDINE HCL TAB [Concomitant]
  55. NITROFURANTOIN [Concomitant]

REACTIONS (28)
  - ANGINA UNSTABLE [None]
  - BENIGN PROSTATIC HYPERPLASIA [None]
  - BLEPHARITIS [None]
  - BRONCHITIS [None]
  - BURSITIS [None]
  - CARDIAC FAILURE CONGESTIVE [None]
  - DIABETIC RETINOPATHY [None]
  - ERECTILE DYSFUNCTION [None]
  - FEMUR FRACTURE [None]
  - FOOT DEFORMITY [None]
  - GLAUCOMA [None]
  - HAEMODIALYSIS [None]
  - JOINT INJURY [None]
  - MYOCARDIAL INFARCTION [None]
  - NOCTURIA [None]
  - OEDEMA PERIPHERAL [None]
  - OLIGURIA [None]
  - ORTHOSTATIC HYPOTENSION [None]
  - POLLAKIURIA [None]
  - PROSTATISM [None]
  - RENAL FAILURE [None]
  - RESIDUAL URINE VOLUME [None]
  - RHABDOMYOLYSIS [None]
  - ROSACEA [None]
  - SLEEP APNOEA SYNDROME [None]
  - URINARY INCONTINENCE [None]
  - URINARY TRACT INFECTION [None]
  - VENOUS STASIS [None]
